FAERS Safety Report 24560843 (Version 1)
Quarter: 2024Q4

REPORT INFORMATION
  Report Type: Spontaneous
  Country: RU (occurrence: RU)
  Receive Date: 20241029
  Receipt Date: 20241029
  Transmission Date: 20250114
  Serious: Yes (Other)
  Sender: PFIZER
  Company Number: RU-PFIZER INC-202400286514

PATIENT
  Age: 83 Year
  Sex: Female

DRUGS (1)
  1. PALBOCICLIB [Suspect]
     Active Substance: PALBOCICLIB
     Indication: Breast cancer metastatic
     Dosage: UNK

REACTIONS (3)
  - Neutropenia [Unknown]
  - Atrial fibrillation [Unknown]
  - Anaemia [Unknown]

NARRATIVE: CASE EVENT DATE: 20240901
